FAERS Safety Report 4770995-5 (Version None)
Quarter: 2005Q3

REPORT INFORMATION
  Report Type: 
  Country: None (occurrence: None)
  Receive Date: 20050914
  Receipt Date: 20050830
  Transmission Date: 20060218
  Serious: Yes (Death)
  Sender: FDA-Public Use
  Company Number: MK200509-0109-1

PATIENT
  Age: 82 Year
  Sex: Male
  Weight: 61 kg

DRUGS (14)
  1. HEXABRIX [Suspect]
     Dosage: 600 ML, SINGLE USE, IA
     Route: 013
     Dates: start: 20050716, end: 20050716
  2. ABICIXIMAB [Concomitant]
  3. ATROPINE [Concomitant]
  4. HYDROCORTISONE [Concomitant]
  5. MOLSIDOMINE [Concomitant]
  6. VERAPAMIL [Concomitant]
  7. ACEBUTOLOL [Concomitant]
  8. ISOSORBIDE [Concomitant]
  9. ACETYLCYSTEINE [Concomitant]
  10. ENOXAPARIN SODIUM [Concomitant]
  11. ACETYLSALICYLATE LYSINE [Concomitant]
  12. CLOPIDOGREL [Concomitant]
  13. OMEPRAZOLE [Concomitant]
  14. ATORVASTATIN [Concomitant]

REACTIONS (2)
  - BLOOD CREATININE INCREASED [None]
  - OLIGURIA [None]
